FAERS Safety Report 8435215-9 (Version None)
Quarter: 2012Q2

REPORT INFORMATION
  Report Type: 
  Country: None (occurrence: None)
  Receive Date: 20120614
  Receipt Date: 20120606
  Transmission Date: 20120825
  Serious: Yes (Other)
  Sender: FDA-Public Use
  Company Number: JP-ASTELLAS-2012JP003661

PATIENT
  Sex: Male
  Weight: 63 kg

DRUGS (23)
  1. PREDNISOLONE [Suspect]
     Indication: MYASTHENIA GRAVIS
     Dosage: 90 MG, QOD
     Route: 048
     Dates: end: 20110407
  2. DIOVAN [Concomitant]
     Dosage: 80 MG, UNKNOWN/D
     Route: 048
  3. PREDNISOLONE [Suspect]
     Dosage: 40 MG, QOD
     Route: 048
     Dates: start: 20110907, end: 20111004
  4. TACROLIMUS [Suspect]
     Indication: MYASTHENIA GRAVIS
     Dosage: 3 MG, UNKNOWN/D
     Route: 048
     Dates: start: 20110325
  5. PREDNISOLONE [Suspect]
     Dosage: 80 MG, QOD
     Route: 048
     Dates: start: 20110408, end: 20110517
  6. PREDNISOLONE [Suspect]
     Dosage: 30 MG, QOD
     Route: 048
     Dates: start: 20111102, end: 20111129
  7. MESTINON [Concomitant]
     Indication: MYASTHENIA GRAVIS
     Dosage: 180 MG, UNKNOWN/D
     Route: 048
  8. WARFARIN SODIUM [Concomitant]
     Indication: DEEP VEIN THROMBOSIS
     Dosage: 2 MG, UNKNOWN/D
     Route: 048
     Dates: start: 20110607
  9. COTRIM [Concomitant]
     Indication: PROPHYLAXIS
     Dosage: 1 DF, UNKNOWN/D
     Route: 048
  10. PREDNISOLONE [Suspect]
     Dosage: 50 MG, QOD
     Route: 048
     Dates: start: 20110713, end: 20110809
  11. PREDNISOLONE [Suspect]
     Dosage: 70 MG, QOD
     Route: 048
     Dates: start: 20110518, end: 20110607
  12. PREDNISOLONE [Suspect]
     Dosage: 60 MG, QOD
     Route: 048
     Dates: start: 20110608, end: 20110712
  13. PREDNISOLONE [Suspect]
     Dosage: 20 MG, QOD
     Route: 048
     Dates: start: 20120222, end: 20120403
  14. FAMOTIDINE [Concomitant]
     Indication: PROPHYLAXIS
     Dosage: 20 MG, UNKNOWN/D
     Route: 048
  15. LAXOBERON [Concomitant]
     Dosage: 5 MG, UNKNOWN/D
     Route: 048
  16. PREDNISOLONE [Suspect]
     Dosage: 35 MG, QOD
     Route: 048
     Dates: start: 20111005, end: 20111101
  17. PREDNISOLONE [Suspect]
     Dosage: 25 MG, QOD
     Route: 048
     Dates: start: 20111228, end: 20120124
  18. PREDNISOLONE [Suspect]
     Dosage: 19 MG, QOD
     Route: 048
     Dates: start: 20120404
  19. PURSENNID [Concomitant]
     Dosage: 36 MG, UNKNOWN/D
     Route: 048
  20. PREDNISOLONE [Suspect]
     Dosage: 45 MG, QOD
     Route: 048
     Dates: start: 20110810, end: 20110906
  21. PREDNISOLONE [Suspect]
     Dosage: 27.5 MG, QOD
     Route: 048
     Dates: start: 20111130, end: 20111227
  22. PREDNISOLONE [Suspect]
     Dosage: 22.5 MG, QOD
     Route: 048
     Dates: start: 20120125, end: 20120221
  23. ALENDRONATE SODIUM [Concomitant]
     Indication: PROPHYLAXIS
     Dosage: 35 MG, WEEKLY
     Route: 048

REACTIONS (2)
  - RENAL DISORDER [None]
  - DEEP VEIN THROMBOSIS [None]
